FAERS Safety Report 25410937 (Version 1)
Quarter: 2025Q2

REPORT INFORMATION
  Report Type: Report from Study
  Country: IN (occurrence: IN)
  Receive Date: 20250609
  Receipt Date: 20250609
  Transmission Date: 20250717
  Serious: Yes (Hospitalization)
  Sender: ROCHE
  Company Number: IN-ROCHE-10000215053

PATIENT
  Age: 60 Year
  Sex: Male
  Weight: 62 kg

DRUGS (2)
  1. POLIVY [Suspect]
     Active Substance: POLATUZUMAB VEDOTIN-PIIQ
     Indication: Diffuse large B-cell lymphoma
     Route: 042
     Dates: start: 20250218
  2. POLIVY [Suspect]
     Active Substance: POLATUZUMAB VEDOTIN-PIIQ
     Route: 065

REACTIONS (4)
  - Pyrexia [Unknown]
  - Asthenia [Unknown]
  - Vomiting [Not Recovered/Not Resolved]
  - Full blood count decreased [Not Recovered/Not Resolved]

NARRATIVE: CASE EVENT DATE: 20250220
